FAERS Safety Report 8269685-6 (Version None)
Quarter: 2012Q2

REPORT INFORMATION
  Report Type: 
  Country: None (occurrence: None)
  Receive Date: 20120405
  Receipt Date: 20120403
  Transmission Date: 20120825
  Serious: Yes (Hospitalization, Other)
  Sender: FDA-Public Use
  Company Number: ADR-2011-10204

PATIENT
  Sex: Male

DRUGS (1)
  1. LIORESAL [Suspect]
     Indication: MUSCLE SPASTICITY
     Dosage: UNK MCG, DAILY, INTRATH
     Route: 037

REACTIONS (12)
  - MALAISE [None]
  - BLOOD PRESSURE INCREASED [None]
  - HYPERHIDROSIS [None]
  - TACHYCARDIA [None]
  - MUSCLE SPASTICITY [None]
  - HYPERTONIA [None]
  - RHABDOMYOLYSIS [None]
  - INTESTINAL DILATATION [None]
  - UNEVALUABLE EVENT [None]
  - DEVICE BATTERY ISSUE [None]
  - URINARY RETENTION POSTOPERATIVE [None]
  - INJURY [None]
